FAERS Safety Report 21372044 (Version 6)
Quarter: 2022Q4

REPORT INFORMATION
  Report Type: Spontaneous
  Country: GR (occurrence: GR)
  Receive Date: 20220923
  Receipt Date: 20221205
  Transmission Date: 20230113
  Serious: Yes (Other)
  Sender: FDA-Public Use
  Company Number: GR-ROCHE-3177113

PATIENT
  Sex: Male

DRUGS (20)
  1. DEXAMETHASONE [Suspect]
     Active Substance: DEXAMETHASONE
     Indication: Richter^s syndrome
     Dosage: 5LINE THERAPY, DATE OF LAST ADMINISTRATION 26/AUG/2022
     Route: 042
     Dates: start: 20220822, end: 20220826
  2. CISPLATIN [Suspect]
     Active Substance: CISPLATIN
     Indication: Richter^s syndrome
     Dosage: 5 LINE THERAPY, LAST ADMINISTERED DOSE : 26/AUG/2022
     Route: 042
     Dates: start: 20220822, end: 20220826
  3. RITUXIMAB [Suspect]
     Active Substance: RITUXIMAB
     Indication: Richter^s syndrome
     Dosage: 1/MAY/2015 TO 1/NOV/2016: 1ST LINE, DATE OF LAST ADMINISTRED DOSE : 9/AUG/2022
     Route: 042
     Dates: start: 20220715, end: 20220809
  4. RITUXIMAB [Suspect]
     Active Substance: RITUXIMAB
     Indication: Chronic lymphocytic leukaemia
  5. VENETOCLAX [Suspect]
     Active Substance: VENETOCLAX
     Indication: Richter^s syndrome
     Dosage: 3 LINE THERAPY, LAST ADMINISTERED DOSE: 14/JUL/2022
     Route: 042
     Dates: start: 20200813, end: 20220714
  6. CYCLOPHOSPHAMIDE\DOXORUBICIN\PREDNISONE\VINCRISTINE [Suspect]
     Active Substance: CYCLOPHOSPHAMIDE\DOXORUBICIN\PREDNISONE\VINCRISTINE
     Indication: Richter^s syndrome
     Dosage: 4 LINE THERAPY, DATE OF LAST DRUG ADMINISTRATION: 9/AUG/2022
     Route: 042
     Dates: start: 20220715, end: 20220809
  7. CYCLOPHOSPHAMIDE [Suspect]
     Active Substance: CYCLOPHOSPHAMIDE
     Indication: Richter^s syndrome
     Dosage: 1 LINE THERAPY, DATE OF LAST ADMINISTRATION: 1/NOV/2016
     Route: 042
     Dates: start: 20150501, end: 20161101
  8. CYCLOPHOSPHAMIDE [Suspect]
     Active Substance: CYCLOPHOSPHAMIDE
     Indication: Chronic lymphocytic leukaemia
  9. FLUDARABINE [Suspect]
     Active Substance: FLUDARABINE PHOSPHATE
     Indication: Richter^s syndrome
     Dosage: 1 LINE THERAPY, DATE OF LAST ADMINISTRATION 1/NOV/2016
     Route: 042
     Dates: start: 20150501, end: 20161101
  10. FLUDARABINE [Suspect]
     Active Substance: FLUDARABINE PHOSPHATE
     Indication: Chronic lymphocytic leukaemia
  11. CYTARABINE [Suspect]
     Active Substance: CYTARABINE
     Indication: Richter^s syndrome
     Dosage: 5 LINE THERAPY, DATE OF LAST ADMINISTRATION : 26/AUG/2022
     Route: 042
     Dates: start: 20220822, end: 20220826
  12. IBRUTINIB [Suspect]
     Active Substance: IBRUTINIB
     Indication: Richter^s syndrome
     Dosage: 2 LINE THERAPY, DATE OF LAST ADMINISTRATION: 1/AUG/2020
     Route: 042
     Dates: start: 20180424, end: 20200801
  13. IBRUTINIB [Suspect]
     Active Substance: IBRUTINIB
     Indication: Chronic lymphocytic leukaemia
  14. OFATUMUMAB [Suspect]
     Active Substance: OFATUMUMAB
     Indication: Richter^s syndrome
     Dosage: 1 LINE THERAPY, DATE OF LAST ADMINISTRATION 1/NOV/2016
     Route: 065
     Dates: start: 20150501, end: 20161101
  15. OFATUMUMAB [Suspect]
     Active Substance: OFATUMUMAB
     Indication: Chronic lymphocytic leukaemia
  16. FLUCONAZOLE [Concomitant]
     Active Substance: FLUCONAZOLE
     Indication: Product used for unknown indication
  17. ALLOPURINOL [Concomitant]
     Active Substance: ALLOPURINOL
     Indication: Product used for unknown indication
  18. ONDANSETRON [Concomitant]
     Active Substance: ONDANSETRON
     Indication: Product used for unknown indication
  19. ACYCLOVIR [Concomitant]
     Active Substance: ACYCLOVIR
     Indication: Product used for unknown indication
  20. TRANEXAMIC ACID [Concomitant]
     Active Substance: TRANEXAMIC ACID
     Indication: Product used for unknown indication

REACTIONS (5)
  - Febrile neutropenia [Unknown]
  - Drug hypersensitivity [Unknown]
  - Disease progression [Unknown]
  - Bacterial infection [Unknown]
  - Therapy partial responder [Unknown]
